FAERS Safety Report 9229268 (Version 1)
Quarter: 2013Q2

REPORT INFORMATION
  Report Type: Spontaneous
  Country: US (occurrence: US)
  Receive Date: 20130412
  Receipt Date: 20130412
  Transmission Date: 20140414
  Serious: Yes (Hospitalization)
  Sender: FDA-Public Use
  Company Number: US-ASTELLAS-2012US011086

PATIENT
  Sex: Male
  Weight: 84 kg

DRUGS (7)
  1. PROGRAF [Suspect]
     Indication: LIVER TRANSPLANT
     Dosage: 2 MG, BID
     Route: 048
     Dates: start: 20010810
  2. ASPIRIN [Concomitant]
     Indication: CARDIAC FAILURE
     Dosage: 80 MG, UID/QD
     Route: 048
     Dates: start: 20121106
  3. METFORMIN [Concomitant]
     Indication: DIABETES MELLITUS
     Dosage: 1000 MG, UID/QD
     Route: 048
  4. GLIPIZIDE [Concomitant]
     Indication: DIABETES MELLITUS
     Dosage: 5 MG, UID/QD
     Route: 048
  5. PRINIVIL [Concomitant]
     Indication: CARDIAC FAILURE
     Dosage: 10 MG, UID/QD
     Route: 048
     Dates: start: 20121106
  6. METOPROLOL [Concomitant]
     Indication: CARDIAC FAILURE
     Dosage: 50 MG, BID
     Route: 048
     Dates: start: 20121106
  7. PRASUGREL [Concomitant]
     Indication: CARDIAC FAILURE
     Dosage: 10 MG, UID/QD
     Route: 048
     Dates: start: 20121106

REACTIONS (1)
  - Myocardial infarction [Recovering/Resolving]
